FAERS Safety Report 9152817 (Version 1)
Quarter: 2013Q1

REPORT INFORMATION
  Report Type: Spontaneous
  Country: US (occurrence: US)
  Receive Date: 20130309
  Receipt Date: 20130309
  Transmission Date: 20140127
  Serious: Yes (Death, Other)
  Sender: FDA-Public Use
  Company Number: US-TEVA-390196USA

PATIENT
  Sex: Female

DRUGS (5)
  1. DIPHENHYDRAMINE [Suspect]
  2. OXYCODONE [Suspect]
  3. DEXTROMETHORPHAN [Suspect]
  4. BROMPHENIRAMINE [Suspect]
  5. GUAIFENESIN [Suspect]

REACTIONS (1)
  - Death [Fatal]
